FAERS Safety Report 24450182 (Version 2)
Quarter: 2024Q4

REPORT INFORMATION
  Report Type: Spontaneous
  Country: IT (occurrence: IT)
  Receive Date: 20241017
  Receipt Date: 20241031
  Transmission Date: 20250115
  Serious: Yes (Other)
  Sender: BOEHRINGER INGELHEIM
  Company Number: IT-Komodo Health-a23aa000003jizFAAQ

PATIENT
  Age: 75 Year
  Sex: Male
  Weight: 50 kg

DRUGS (1)
  1. OFEV [Suspect]
     Active Substance: NINTEDANIB
     Indication: Idiopathic pulmonary fibrosis
     Dates: start: 20240905

REACTIONS (2)
  - Retinal artery occlusion [Recovered/Resolved with Sequelae]
  - Arteritis [Recovered/Resolved with Sequelae]

NARRATIVE: CASE EVENT DATE: 20241011
